FAERS Safety Report 4441995-X (Version None)
Quarter: 2004Q3

REPORT INFORMATION
  Report Type: 
  Country: None (occurrence: None)
  Receive Date: 20040907
  Receipt Date: 20040903
  Transmission Date: 20050211
  Serious: Yes (Other)
  Sender: FDA-Public Use
  Company Number: DE-GLAXOSMITHKLINE-D0044607A

PATIENT

DRUGS (1)
  1. AUGMENTIN [Suspect]
     Route: 065

REACTIONS (1)
  - THROMBOPHLEBITIS [None]
